FAERS Safety Report 8828833 (Version 5)
Quarter: 2014Q2

REPORT INFORMATION
  Report Type: Spontaneous
  Country: US (occurrence: US)
  Receive Date: 20121009
  Receipt Date: 20140429
  Transmission Date: 20141212
  Serious: Yes (Hospitalization)
  Sender: FDA-Public Use
  Company Number: US-BAYER-2012-103406

PATIENT
  Age: 16 Year
  Sex: Female

DRUGS (4)
  1. YASMIN [Suspect]
     Dosage: UNK
     Dates: start: 20020101, end: 200306
  2. METFORMIN [Concomitant]
  3. ALDACTONE A [Concomitant]
  4. DIFLUCAN [Concomitant]
     Dosage: 150 MG, UNK
     Route: 048
     Dates: start: 20040112

REACTIONS (9)
  - Gallbladder injury [None]
  - Cholecystitis chronic [None]
  - General physical health deterioration [None]
  - Pain [None]
  - Injury [None]
  - Emotional distress [None]
  - Pain [None]
  - Anhedonia [None]
  - Anxiety [None]
